FAERS Safety Report 11429464 (Version 1)
Quarter: 2015Q3

REPORT INFORMATION
  Report Type: Spontaneous
  Country: US (occurrence: US)
  Receive Date: 20150828
  Receipt Date: 20150828
  Transmission Date: 20151125
  Serious: No
  Sender: FDA-Public Use
  Company Number: PHEH2014US017502

PATIENT
  Sex: Female

DRUGS (5)
  1. RECLAST [Suspect]
     Active Substance: ZOLEDRONIC ACID
     Dosage: UNK UKN, UNK
     Route: 042
  2. RECLAST [Suspect]
     Active Substance: ZOLEDRONIC ACID
     Dosage: EVERY 12 MONTHS
     Route: 042
  3. RECLAST [Suspect]
     Active Substance: ZOLEDRONIC ACID
     Dosage: UNK UKN, UNK
     Route: 042
     Dates: start: 201405
  4. FISH OIL [Concomitant]
     Active Substance: FISH OIL
     Dosage: UNK UKN, UNK
  5. VITAMIN E [Concomitant]
     Active Substance: .ALPHA.-TOCOPHEROL
     Dosage: UNK UKN, UNK

REACTIONS (2)
  - Urticaria [Unknown]
  - Inflammation [Unknown]
